FAERS Safety Report 24605029 (Version 1)
Quarter: 2024Q4

REPORT INFORMATION
  Report Type: Spontaneous
  Country: FR (occurrence: FR)
  Receive Date: 20241111
  Receipt Date: 20241111
  Transmission Date: 20250115
  Serious: Yes (Hospitalization)
  Sender: AMERICAN REGENT
  Company Number: FR-AMERICAN REGENT INC-2024004178

PATIENT
  Age: 91 Year
  Sex: Male

DRUGS (3)
  1. VENOFER [Suspect]
     Active Substance: IRON SUCROSE
     Indication: Anaemia
     Dosage: 300 MILLIGRAM
     Route: 042
     Dates: start: 20241011, end: 20241013
  2. PRISTINAMYCIN [Suspect]
     Active Substance: PRISTINAMYCIN
     Indication: Dermo-hypodermitis
     Dosage: 1G 2X/J (2 GM,1 IN 1 D)
     Route: 048
     Dates: start: 20241010, end: 20241014
  3. AUGMENTIN [Suspect]
     Active Substance: AMOXICILLIN\CLAVULANATE POTASSIUM
     Indication: Dermo-hypodermitis
     Dosage: 1G 3X/J (3 GM,1 IN 1 D)
     Route: 048
     Dates: start: 20241008, end: 20241010

REACTIONS (2)
  - Acute generalised exanthematous pustulosis [Recovering/Resolving]
  - Rash [Recovered/Resolved]

NARRATIVE: CASE EVENT DATE: 20241001
